FAERS Safety Report 5750908-X (Version None)
Quarter: 2008Q2

REPORT INFORMATION
  Report Type: 
  Country: None (occurrence: None)
  Receive Date: 20080528
  Receipt Date: 20080516
  Transmission Date: 20081010
  Serious: Yes (Death, Hospitalization)
  Sender: FDA-Public Use
  Company Number: GB-ROCHE-565383

PATIENT
  Sex: Female

DRUGS (18)
  1. XELODA [Suspect]
     Indication: BREAST CANCER
     Route: 048
     Dates: start: 20071204, end: 20080401
  2. BENZYDAMINE HYDROCHLORIDE [Suspect]
     Dosage: TRADE NAME OF THE DRUG: DIFFLAM MOUTHWASH
     Route: 065
     Dates: start: 20071218
  3. LANSOPRAZOLE [Concomitant]
     Route: 048
  4. FENTANYL-100 [Concomitant]
     Indication: PAIN
  5. E45 [Concomitant]
     Indication: PALMAR-PLANTAR ERYTHRODYSAESTHESIA SYNDROME
     Route: 061
  6. E45 [Concomitant]
     Route: 061
  7. E45 [Concomitant]
     Route: 061
  8. ACYCLOVIR [Concomitant]
     Route: 048
  9. LORATADINE [Concomitant]
     Indication: PALMAR-PLANTAR ERYTHRODYSAESTHESIA SYNDROME
     Route: 048
     Dates: start: 20071218
  10. FLUOXETINE HYDROCHLORIDE [Concomitant]
     Indication: DEPRESSION
     Route: 060
     Dates: start: 20051201, end: 20071216
  11. ZOPICLONE [Concomitant]
     Indication: INSOMNIA
     Route: 048
     Dates: start: 20050201
  12. DICLOFENAC [Concomitant]
     Indication: PAIN
     Route: 048
     Dates: start: 20060201
  13. ALPHOSYL [Concomitant]
     Dosage: FORM: SHAMPOO
     Route: 061
     Dates: start: 20050201
  14. ALPHOSYL [Concomitant]
     Dosage: FORM: SHAMPOO
     Route: 061
     Dates: start: 20050201
  15. AQUEOUS CREAM [Concomitant]
     Indication: PALMAR-PLANTAR ERYTHRODYSAESTHESIA SYNDROME
     Route: 061
     Dates: start: 20050219
  16. AQUEOUS CREAM [Concomitant]
     Route: 061
     Dates: start: 20050219
  17. LETROZOLE [Concomitant]
     Indication: BREAST CANCER
     Route: 048
     Dates: start: 20050201
  18. DF 118 [Concomitant]
     Indication: PALMAR-PLANTAR ERYTHRODYSAESTHESIA SYNDROME
     Route: 048
     Dates: start: 20071218

REACTIONS (1)
  - CONDITION AGGRAVATED [None]
